FAERS Safety Report 5947843-0 (Version None)
Quarter: 2008Q4

REPORT INFORMATION
  Report Type: 
  Country: None (occurrence: None)
  Receive Date: 20081107
  Receipt Date: 20081023
  Transmission Date: 20090506
  Serious: Yes (Hospitalization)
  Sender: FDA-Public Use
  Company Number: DSA_29839_2007

PATIENT
  Age: 70 Year
  Sex: Female

DRUGS (6)
  1. MONO-TILDIEM (MONO-TILDIEM) 200 MG (NOT SPECIFIED) [Suspect]
     Dosage: (200 MG QD ORAL)
     Route: 048
     Dates: start: 20040315, end: 20060715
  2. COAPROVEL (COAPROVEL) (NOT SPECIFIED) [Suspect]
     Dosage: (ORAL)
     Route: 048
     Dates: end: 20061001
  3. MODURETIC 5-50 [Concomitant]
  4. RILMENIDINE [Concomitant]
  5. TAHOR [Concomitant]
  6. PLAVIX [Concomitant]

REACTIONS (6)
  - BLOOD BILIRUBIN INCREASED [None]
  - ERYTHRODERMIC PSORIASIS [None]
  - GENERAL PHYSICAL HEALTH DETERIORATION [None]
  - HEPATITIS C RNA POSITIVE [None]
  - TOXIC SKIN ERUPTION [None]
  - WEIGHT DECREASED [None]
